FAERS Safety Report 23099807 (Version 1)
Quarter: 2023Q4

REPORT INFORMATION
  Report Type: Spontaneous
  Country: US (occurrence: None)
  Receive Date: 20231023
  Receipt Date: 20231023
  Transmission Date: 20240110
  Serious: Yes (Hospitalization)
  Sender: FDA-Public Use
  Company Number: None

PATIENT
  Age: 74 Year
  Sex: Female
  Weight: 84.6 kg

DRUGS (1)
  1. PRIVIGEN [Suspect]
     Active Substance: HUMAN IMMUNOGLOBULIN G
     Indication: Hypogammaglobulinaemia
     Dosage: FREQUENCY : ONCE;?
     Route: 041
     Dates: start: 20231020, end: 20231020

REACTIONS (4)
  - Infusion related reaction [None]
  - Chills [None]
  - Chest pain [None]
  - Sinus tachycardia [None]

NARRATIVE: CASE EVENT DATE: 20231020
